FAERS Safety Report 19576177 (Version 1)
Quarter: 2021Q3

REPORT INFORMATION
  Report Type: Spontaneous
  Country: US (occurrence: US)
  Receive Date: 20210718
  Receipt Date: 20210718
  Transmission Date: 20211014
  Serious: Yes (Disabling)
  Sender: FDA-Public Use
  Company Number: None

PATIENT
  Age: 37 Year
  Sex: Female

DRUGS (15)
  1. NASACORT [Suspect]
     Active Substance: TRIAMCINOLONE ACETONIDE
  2. FISH OIL [Concomitant]
     Active Substance: FISH OIL
  3. VALERIAN [Concomitant]
     Active Substance: VALERIAN
  4. ADVAIR HFA [Suspect]
     Active Substance: FLUTICASONE PROPIONATE\SALMETEROL XINAFOATE
  5. LORAZEPAM. [Concomitant]
     Active Substance: LORAZEPAM
  6. NITRIC OXIDE SUPPLEMENT [Concomitant]
  7. FLUTICASONE. [Suspect]
     Active Substance: FLUTICASONE
  8. BENADRYL [Concomitant]
     Active Substance: DIPHENHYDRAMINE HYDROCHLORIDE
  9. VITAMIN D [Concomitant]
     Active Substance: VITAMIN D NOS
  10. MELATONIN [Concomitant]
     Active Substance: MELATONIN
  11. CANDIBACTIN AR [Concomitant]
  12. ALREX [Suspect]
     Active Substance: LOTEPREDNOL ETABONATE
  13. SBI PROTECT [Concomitant]
  14. FLONASE [Suspect]
     Active Substance: FLUTICASONE PROPIONATE
     Indication: PULMONARY CONGESTION
     Dosage: ?          QUANTITY:55 SPRAY(S);?
     Route: 055
     Dates: start: 20160701, end: 20190102
  15. CORTISOL MANAGER [Concomitant]

REACTIONS (18)
  - Nasal congestion [None]
  - Loss of personal independence in daily activities [None]
  - Affect lability [None]
  - Pregnancy [None]
  - Steroid withdrawal syndrome [None]
  - Neuralgia [None]
  - Circadian rhythm sleep disorder [None]
  - Sensitive skin [None]
  - Feeling of body temperature change [None]
  - Lymphadenopathy [None]
  - Oedema [None]
  - Skin atrophy [None]
  - Rhinorrhoea [None]
  - Exposure during pregnancy [None]
  - Dry eye [None]
  - Eye irritation [None]
  - Decreased appetite [None]
  - Pruritus [None]

NARRATIVE: CASE EVENT DATE: 20190105
